FAERS Safety Report 7162299-0 (Version None)
Quarter: 2010Q4

REPORT INFORMATION
  Report Type: 
  Country: None (occurrence: None)
  Receive Date: 20101215
  Receipt Date: 20101208
  Transmission Date: 20110411
  Serious: Yes (Other)
  Sender: FDA-Public Use
  Company Number: FR-ASTRAZENECA-2010SE58605

PATIENT
  Age: 24992 Day
  Sex: Female

DRUGS (4)
  1. CRESTOR [Suspect]
     Route: 048
     Dates: start: 20101028, end: 20101126
  2. BACTRIM [Suspect]
     Indication: ATYPICAL MYCOBACTERIAL INFECTION
     Route: 048
     Dates: start: 20101103, end: 20101126
  3. CLARITHROMYCIN [Suspect]
     Route: 048
     Dates: start: 20101103, end: 20101126
  4. MYAMBUTOL [Suspect]
     Route: 048
     Dates: start: 20101103, end: 20101126

REACTIONS (2)
  - CHOLESTASIS [None]
  - CYTOLYTIC HEPATITIS [None]
